FAERS Safety Report 8981764 (Version 2)
Quarter: 2013Q1

REPORT INFORMATION
  Report Type: Spontaneous
  Country: BR (occurrence: BR)
  Receive Date: 20121223
  Receipt Date: 20130122
  Transmission Date: 20140127
  Serious: Yes (Death)
  Sender: FDA-Public Use
  Company Number: PHHY2012BR118454

PATIENT
  Sex: Female

DRUGS (8)
  1. DIOVAN [Suspect]
     Indication: HYPERTENSION
     Dosage: 1 DF, QD (IN THE MORNING)
     Route: 048
     Dates: start: 2005
  2. MONOCORDIL [Concomitant]
     Indication: CARDIOMEGALY
     Dosage: 2 DF (20 MG) DAILY
     Route: 048
  3. MONOCORDIL [Concomitant]
     Dosage: 1 DF (40 MG) BID
     Route: 048
  4. ALDACTONE [Concomitant]
     Indication: HYPERTENSION
     Dosage: 1 DF, DAILY
     Route: 048
  5. DIVELOL [Concomitant]
     Indication: CARDIAC DISORDER
     Dosage: 1 DF, BID
     Route: 048
     Dates: start: 2005
  6. PLAVIX [Concomitant]
     Indication: COAGULOPATHY
     Dosage: 1 DF, DAILY
     Route: 048
     Dates: start: 2004
  7. COUMADINE [Concomitant]
     Indication: BLOOD CHOLESTEROL ABNORMAL
     Dosage: 2.5 MG, ON WEDNESDAY AND FRIDAY AND 1 MG OTHERS DAY
     Route: 048
  8. LEXOTAN [Concomitant]
     Indication: SLEEP DISORDER
     Dosage: 1 DF DAILY
     Route: 048

REACTIONS (2)
  - Multi-organ failure [Fatal]
  - Cardio-respiratory arrest [Fatal]
